FAERS Safety Report 25364715 (Version 2)
Quarter: 2025Q2

REPORT INFORMATION
  Report Type: Spontaneous
  Country: SK (occurrence: SK)
  Receive Date: 20250527
  Receipt Date: 20250604
  Transmission Date: 20250716
  Serious: Yes (Death)
  Sender: MYLAN
  Company Number: SK-MYLANLABS-2025M1044323

PATIENT
  Age: 27 Year
  Sex: Male

DRUGS (2)
  1. VANCOMYCIN [Suspect]
     Active Substance: VANCOMYCIN
     Indication: Endocarditis
  2. GENTAMICIN [Concomitant]
     Active Substance: GENTAMICIN
     Indication: Endocarditis

REACTIONS (1)
  - Drug ineffective [Fatal]
